FAERS Safety Report 8140584-3 (Version None)
Quarter: 2012Q1

REPORT INFORMATION
  Report Type: 
  Country: None (occurrence: None)
  Receive Date: 20120216
  Receipt Date: 20120210
  Transmission Date: 20120608
  Serious: Yes (Death)
  Sender: FDA-Public Use
  Company Number: US-CELGENEUS-163-21880-11100956

PATIENT
  Sex: Male

DRUGS (7)
  1. VELCADE [Concomitant]
     Dosage: 1 MILLIGRAM/SQ. METER
     Route: 065
     Dates: start: 20110101, end: 20110901
  2. REVLIMID [Suspect]
     Indication: MULTIPLE MYELOMA
     Dosage: 25 MILLIGRAM
     Route: 048
     Dates: start: 20060701, end: 20060101
  3. REVLIMID [Suspect]
     Dosage: 10 MILLIGRAM
     Route: 048
     Dates: start: 20101101
  4. ACYCLOVIR [Concomitant]
     Dosage: 400 MILLIGRAM
     Route: 065
  5. REVLIMID [Suspect]
     Dosage: 10 MILLIGRAM
     Route: 048
     Dates: start: 20110128, end: 20110901
  6. ZOMETA [Concomitant]
     Dosage: 4 MILLIGRAM
     Route: 065
  7. DEXAMETHASONE [Concomitant]
     Dosage: 10 MILLIGRAM
     Route: 065
     Dates: start: 20110101, end: 20110901

REACTIONS (1)
  - PNEUMONIA [None]
